FAERS Safety Report 8547783 (Version 11)
Quarter: 2015Q1

REPORT INFORMATION
  Report Type: Spontaneous
  Country: CA (occurrence: CA)
  Receive Date: 20120504
  Receipt Date: 20150309
  Transmission Date: 20150721
  Serious: Yes (Hospitalization, Other)
  Sender: FDA-Public Use
  Company Number: CA-ROCHE-1064772

PATIENT
  Sex: Female

DRUGS (6)
  1. XOLAIR [Suspect]
     Active Substance: OMALIZUMAB
     Indication: ASTHMA
     Route: 058
     Dates: start: 20120327
  2. ADVAIR HFA [Concomitant]
     Active Substance: FLUTICASONE PROPIONATE\SALMETEROL XINAFOATE
  3. SINGULAIR [Concomitant]
     Active Substance: MONTELUKAST SODIUM
  4. SALBUTAMOL [Concomitant]
     Active Substance: ALBUTEROL
  5. ALVESCO [Concomitant]
     Active Substance: CICLESONIDE
     Route: 065
  6. ALVESCO [Concomitant]
     Active Substance: CICLESONIDE
     Dosage: 8 PUFF PER DAY
     Route: 065
     Dates: start: 20120809

REACTIONS (10)
  - Gait disturbance [Unknown]
  - Pruritus [Unknown]
  - Erythema [Recovering/Resolving]
  - Skin reaction [Recovering/Resolving]
  - Abdominal pain upper [Unknown]
  - Arthralgia [Unknown]
  - Blood pressure increased [Not Recovered/Not Resolved]
  - Influenza like illness [Unknown]
  - Chest pain [Unknown]
  - Cholelithiasis [Unknown]
